FAERS Safety Report 8816724 (Version 1)
Quarter: 2012Q4

REPORT INFORMATION
  Report Type: Spontaneous
  Country: US (occurrence: None)
  Receive Date: 20121001
  Receipt Date: 20121001
  Transmission Date: 20130627
  Serious: Yes (Hospitalization)
  Sender: FDA-Public Use
  Company Number: 2012SUN00066

PATIENT
  Age: 80 Year
  Sex: Male

DRUGS (2)
  1. CIPROFLOXACIN (CIPROFLOXACIN) [Suspect]
     Indication: BORDETELLA INFECTION
     Route: 048
  2. LEVOFLOXACIN (LEVOFLOXACIN) [Concomitant]

REACTIONS (2)
  - Drug resistance [None]
  - Endocarditis [None]
